FAERS Safety Report 20949869 (Version 2)
Quarter: 2023Q2

REPORT INFORMATION
  Report Type: Spontaneous
  Country: US (occurrence: US)
  Receive Date: 20220613
  Receipt Date: 20230419
  Transmission Date: 20230721
  Serious: Yes (Hospitalization)
  Sender: FDA-Public Use
  Company Number: US-JNJFOC-20220610394

PATIENT
  Age: 52 Year
  Sex: Male

DRUGS (1)
  1. INVOKANA [Suspect]
     Active Substance: CANAGLIFLOZIN
     Indication: Product used for unknown indication
     Route: 048

REACTIONS (6)
  - Dry gangrene [Unknown]
  - Osteomyelitis chronic [Unknown]
  - Diabetic foot [Unknown]
  - Staphylococcal infection [Unknown]
  - Toe amputation [Unknown]
  - Treatment noncompliance [Unknown]

NARRATIVE: CASE EVENT DATE: 20180301
